FAERS Safety Report 4581471-7 (Version None)
Quarter: 2005Q1

REPORT INFORMATION
  Report Type: 
  Country: None (occurrence: None)
  Receive Date: 20050214
  Receipt Date: 20041029
  Transmission Date: 20050727
  Serious: No
  Sender: FDA-Public Use
  Company Number: 82796

PATIENT
  Age: 51 Year
  Sex: Female

DRUGS (7)
  1. LAMICTAL [Suspect]
     Indication: BIPOLAR DISORDER
     Dosage: 100MG PER DAY
     Route: 048
     Dates: start: 20040901, end: 20041006
  2. EFFEXOR [Concomitant]
     Indication: DEPRESSION
     Dosage: 300MG PER DAY
     Route: 048
     Dates: start: 20010101
  3. GABATRIL [Concomitant]
     Indication: SLEEP DISORDER
     Route: 048
     Dates: start: 20031201
  4. TRAZODONE [Concomitant]
     Indication: SLEEP DISORDER
     Route: 048
     Dates: start: 20021201
  5. AMITRIPTYLINE [Concomitant]
     Indication: MIGRAINE
     Route: 048
     Dates: start: 20031001
  6. NORTRIPTYLINE HCL [Concomitant]
     Indication: DEPRESSION
     Route: 048
     Dates: start: 20040801
  7. STRATTERA [Concomitant]
     Route: 048
     Dates: start: 20040801, end: 20040801

REACTIONS (1)
  - ARTHRALGIA [None]
